FAERS Safety Report 15227057 (Version 1)
Quarter: 2018Q3

REPORT INFORMATION
  Report Type: Spontaneous
  Country: CA (occurrence: CA)
  Receive Date: 20180801
  Receipt Date: 20180801
  Transmission Date: 20181010
  Serious: Yes (Hospitalization, Other)
  Sender: FDA-Public Use
  Company Number: PHHY2018CA059347

PATIENT
  Age: 68 Year
  Sex: Male

DRUGS (3)
  1. TEGRETOL [Suspect]
     Active Substance: CARBAMAZEPINE
     Indication: CARCINOID TUMOUR
     Route: 065
  2. SANDOSTATIN LAR DEPOT [Suspect]
     Active Substance: OCTREOTIDE ACETATE
     Indication: CARCINOID SYNDROME
     Dosage: 30 MG, QMO
     Route: 030
  3. OCTREOTIDE. [Suspect]
     Active Substance: OCTREOTIDE
     Indication: CARCINOID TUMOUR
     Dosage: 100 MG, (3 EVERY 1 DAYS)
     Route: 058

REACTIONS (4)
  - Loss of consciousness [Recovered/Resolved]
  - Injection site hypersensitivity [Recovered/Resolved]
  - Injection site pain [Recovered/Resolved]
  - Seizure [Recovered/Resolved]
